FAERS Safety Report 6953887-2 (Version None)
Quarter: 2010Q3

REPORT INFORMATION
  Report Type: 
  Country: None (occurrence: None)
  Receive Date: 20100829
  Receipt Date: 20100720
  Transmission Date: 20110219
  Serious: No
  Sender: FDA-Public Use
  Company Number: US-ABBOTT-10P-163-0654344-00

PATIENT
  Sex: Female
  Weight: 71.732 kg

DRUGS (12)
  1. NIASPAN [Suspect]
     Indication: BLOOD CHOLESTEROL INCREASED
     Dosage: AT BEDTIME
     Dates: start: 20080101, end: 20100624
  2. NIASPAN [Suspect]
     Indication: ARTERIOSCLEROSIS
     Dosage: AT BEDTIME
     Route: 048
     Dates: start: 20100625
  3. ASPIRIN [Concomitant]
     Indication: FLUSHING
     Route: 048
     Dates: start: 20080101
  4. ASPIRIN [Concomitant]
     Indication: PROPHYLAXIS
  5. RAMIPRIL [Concomitant]
     Indication: HYPERTENSION
     Route: 048
  6. LIPITOR [Concomitant]
     Indication: BLOOD CHOLESTEROL INCREASED
     Route: 048
  7. NADOLOL [Concomitant]
     Indication: HEART RATE
     Route: 048
  8. CALCIUM [Concomitant]
     Indication: MINERAL SUPPLEMENTATION
     Route: 048
  9. MAGNESIUM OXIDE [Concomitant]
     Indication: MINERAL SUPPLEMENTATION
     Route: 048
  10. MEGA RED KRILL OIL [Concomitant]
     Indication: SUPPLEMENTATION THERAPY
     Route: 048
  11. ASCORBIC ACID [Concomitant]
     Indication: VITAMIN SUPPLEMENTATION
     Route: 048
  12. FOLGARD [Concomitant]
     Indication: VITAMIN SUPPLEMENTATION
     Route: 048

REACTIONS (4)
  - ERYTHEMA [None]
  - FLUSHING [None]
  - INAPPROPRIATE SCHEDULE OF DRUG ADMINISTRATION [None]
  - PRURITUS [None]
